FAERS Safety Report 25139191 (Version 2)
Quarter: 2025Q2

REPORT INFORMATION
  Report Type: Spontaneous
  Country: FR (occurrence: FR)
  Receive Date: 20250331
  Receipt Date: 20250409
  Transmission Date: 20250717
  Serious: Yes (Other)
  Sender: AUROBINDO
  Company Number: FR-ORGANON-O2401FRA000388

PATIENT
  Age: 31 Year
  Sex: Female

DRUGS (3)
  1. BEZAFIBRATE [Suspect]
     Active Substance: BEZAFIBRATE
     Indication: Cholelithiasis
     Route: 065
  2. EZETIMIBE [Suspect]
     Active Substance: EZETIMIBE
     Indication: Cholelithiasis
     Dosage: 10 MILLIGRAM, ONCE A DAY (10 MILLIGRAM, DAILY)
     Route: 065
  3. URSODIOL [Suspect]
     Active Substance: URSODIOL
     Indication: Cholelithiasis
     Route: 065

REACTIONS (4)
  - Anaphylactic reaction [Unknown]
  - Adverse event [Unknown]
  - Drug ineffective [Unknown]
  - Product use in unapproved indication [Unknown]
